FAERS Safety Report 8791330 (Version 1)
Quarter: 2012Q4

REPORT INFORMATION
  Report Type: Spontaneous
  Country: US (occurrence: None)
  Receive Date: 20120911
  Receipt Date: 20120911
  Transmission Date: 20130627
  Serious: Yes (Hospitalization)
  Sender: FDA-Public Use
  Company Number: UTC-022787

PATIENT
  Age: 66 Year
  Sex: Female
  Weight: 84.09 kg

DRUGS (2)
  1. REMODULIN (10 MILLIGRAM/MILLILITERS, INJECTION FOR INFUSION) (TREPROSTINIL SODIUM) [Suspect]
     Indication: PRIMARY PULMONARY HYPERTENSION
     Dosage: 107.28 ug/kg (0.0745 ug/kg, 1 in 1 min), subcutaneous
     Route: 058
  2. LETAIRIS (AMBRISENTAN) [Concomitant]

REACTIONS (1)
  - Convulsion [None]
